FAERS Safety Report 6133629-3 (Version None)
Quarter: 2009Q1

REPORT INFORMATION
  Report Type: 
  Country: None (occurrence: None)
  Receive Date: 20090326
  Receipt Date: 20090320
  Transmission Date: 20090719
  Serious: Yes (Other)
  Sender: FDA-Public Use
  Company Number: US-ASTRAZENECA-2008UW24550

PATIENT
  Age: 30 Year
  Sex: Female
  Weight: 78.9 kg

DRUGS (5)
  1. SEROQUEL [Suspect]
     Indication: BIPOLAR DISORDER
     Dosage: 25-500 MG
     Route: 048
     Dates: start: 20031219, end: 20080201
  2. SEROQUEL [Suspect]
     Indication: DEPRESSION
     Dosage: 25-500 MG
     Route: 048
     Dates: start: 20031219, end: 20080201
  3. ZOLOFT [Concomitant]
     Dates: start: 20041223, end: 20060810
  4. TRAZODONE HCL [Concomitant]
     Dates: start: 20041223, end: 20071231
  5. INVEGA [Concomitant]
     Dates: start: 20070101

REACTIONS (7)
  - BACK INJURY [None]
  - BLOOD CHOLESTEROL INCREASED [None]
  - BLOOD TRIGLYCERIDES INCREASED [None]
  - DIABETES MELLITUS [None]
  - KETOACIDOSIS [None]
  - NECROBIOSIS LIPOIDICA DIABETICORUM [None]
  - NEUROPATHY PERIPHERAL [None]
